FAERS Safety Report 5719845-0 (Version None)
Quarter: 2008Q2

REPORT INFORMATION
  Report Type: 
  Country: None (occurrence: None)
  Receive Date: 20080428
  Receipt Date: 20080414
  Transmission Date: 20081010
  Serious: Yes (Hospitalization)
  Sender: FDA-Public Use
  Company Number: GB-AMGEN-UK242476

PATIENT
  Sex: Female

DRUGS (14)
  1. PANITUMUMAB [Suspect]
     Indication: COLORECTAL CANCER
     Route: 042
     Dates: start: 20070215, end: 20070823
  2. OXALIPLATIN [Suspect]
     Route: 065
  3. FLUOROURACIL [Suspect]
     Route: 065
  4. LEUCOVORIN CALCIUM [Concomitant]
     Route: 065
  5. TRAMADOL HCL [Concomitant]
  6. DOMPERIDONE [Concomitant]
  7. DEXAMETHASONE [Concomitant]
  8. GRANISETRON HCL [Concomitant]
  9. DIPROBASE [Concomitant]
  10. ACETAMINOPHEN W/ CODEINE [Concomitant]
  11. CHLORHEXIDINE GLUCONATE [Concomitant]
  12. DOXYCYCLINE [Concomitant]
  13. TEMAZEPAM [Concomitant]
  14. CHLORPHENIRAMINE MALEATE [Concomitant]

REACTIONS (5)
  - COUGH [None]
  - FLUSHING [None]
  - HYPERSENSITIVITY [None]
  - PYREXIA [None]
  - TACHYCARDIA [None]
